FAERS Safety Report 12218097 (Version 1)
Quarter: 2016Q1

REPORT INFORMATION
  Report Type: Spontaneous
  Country: SE (occurrence: SE)
  Receive Date: 20160329
  Receipt Date: 20160329
  Transmission Date: 20160526
  Serious: Yes (Other)
  Sender: FDA-Public Use
  Company Number: PHHY2016SE039007

PATIENT
  Sex: Male

DRUGS (1)
  1. ZYKADIA [Suspect]
     Active Substance: CERITINIB
     Indication: LUNG CARCINOMA CELL TYPE UNSPECIFIED RECURRENT
     Dosage: UNK
     Route: 065
     Dates: start: 201512

REACTIONS (8)
  - Hypoacusis [Unknown]
  - Hypoaesthesia [Unknown]
  - Psychotic disorder [Unknown]
  - Blindness [Unknown]
  - Anosmia [Unknown]
  - Visual impairment [Unknown]
  - Vision blurred [Unknown]
  - Ageusia [Unknown]
